FAERS Safety Report 4560325-6 (Version None)
Quarter: 2005Q1

REPORT INFORMATION
  Report Type: 
  Country: None (occurrence: None)
  Receive Date: 20050119
  Receipt Date: 20050119
  Transmission Date: 20050727
  Serious: Yes (Life-Threatening)
  Sender: FDA-Public Use
  Company Number: None

PATIENT
  Age: 84 Year
  Sex: Male
  Weight: 80 kg

DRUGS (2)
  1. SOTALOL HCL [Suspect]
     Indication: ARRHYTHMIA
     Dosage: 40 MG BID
     Dates: start: 20021101, end: 20040701
  2. GATIFLOXACIN [Suspect]
     Indication: PNEUMONIA
     Dosage: 400 MG QD
     Dates: start: 20040726, end: 20040727

REACTIONS (1)
  - TORSADE DE POINTES [None]
